FAERS Safety Report 7730488-X (Version None)
Quarter: 2011Q3

REPORT INFORMATION
  Report Type: 
  Country: None (occurrence: None)
  Receive Date: 20110906
  Receipt Date: 20110824
  Transmission Date: 20111222
  Serious: Yes (Other)
  Sender: FDA-Public Use
  Company Number: JP-PFIZER INC-2011204626

PATIENT
  Age: 62 Year
  Sex: Female

DRUGS (2)
  1. GEMCITABINE HYDROCHLORIDE [Suspect]
     Indication: RENAL CELL CARCINOMA
     Dosage: 1500 MG/M2, ON DAY 1
  2. DOXORUBICIN HYDROCHLORIDE [Suspect]
     Indication: RENAL CELL CARCINOMA
     Dosage: 50 MG/M2 ON DAY 1

REACTIONS (3)
  - INTERSTITIAL LUNG DISEASE [None]
  - LEUKOPENIA [None]
  - STOMATITIS [None]
